FAERS Safety Report 6925408-1 (Version None)
Quarter: 2010Q3

REPORT INFORMATION
  Report Type: 
  Country: None (occurrence: None)
  Receive Date: 20100816
  Receipt Date: 20100809
  Transmission Date: 20110219
  Serious: Yes (Hospitalization, Other)
  Sender: FDA-Public Use
  Company Number: US-ROCHE-674699

PATIENT
  Sex: Female
  Weight: 51.3 kg

DRUGS (2)
  1. ACCUTANE [Suspect]
     Indication: ACNE
     Route: 048
     Dates: start: 20000320, end: 20000810
  2. ORTHO TRI-CYCLEN [Concomitant]

REACTIONS (7)
  - ANAL FISSURE [None]
  - ANAL FISTULA [None]
  - CROHN'S DISEASE [None]
  - DEPRESSION [None]
  - INFLAMMATORY BOWEL DISEASE [None]
  - INTESTINAL OBSTRUCTION [None]
  - PERIRECTAL ABSCESS [None]
